FAERS Safety Report 4265835-7 (Version None)
Quarter: 2004Q1

REPORT INFORMATION
  Report Type: 
  Country: None (occurrence: None)
  Receive Date: 20040107
  Receipt Date: 20040107
  Transmission Date: 20041129
  Serious: Yes (Other)
  Sender: FDA-Public Use
  Company Number: None

PATIENT
  Age: 57 Year
  Sex: Female
  Weight: 55.3388 kg

DRUGS (8)
  1. ZOSYN [Suspect]
     Indication: APPENDICEAL ABSCESS
     Dosage: 3.37 G IV Q 6 H
     Route: 042
     Dates: start: 20030901, end: 20031002
  2. ZOSYN [Suspect]
     Indication: APPENDICECTOMY
     Dosage: 3.37 G IV Q 6 H
     Route: 042
     Dates: start: 20030901, end: 20031002
  3. ATENOLOL [Concomitant]
  4. PAXIL [Concomitant]
  5. LEVAQUIN [Concomitant]
  6. DARVOCET-N 100 [Concomitant]
  7. NICOTINE [Concomitant]
  8. NS/HEP [Concomitant]

REACTIONS (1)
  - RASH GENERALISED [None]
